FAERS Safety Report 11072249 (Version 1)
Quarter: 2015Q2

REPORT INFORMATION
  Report Type: Spontaneous
  Country: US (occurrence: US)
  Receive Date: 20150428
  Receipt Date: 20150428
  Transmission Date: 20150821
  Serious: Yes (Other)
  Sender: FDA-Public Use
  Company Number: US-ACTAVIS-2015-08350

PATIENT
  Age: 65 Year
  Sex: Female

DRUGS (9)
  1. TOPIRAMATE (WATSON LABORATORIES) [Suspect]
     Active Substance: TOPIRAMATE
     Indication: DEMENTIA WITH LEWY BODIES
     Dosage: 25 MG, DAILY
     Route: 065
  2. RIVASTIGMINE [Concomitant]
     Active Substance: RIVASTIGMINE
     Indication: DEMENTIA
     Dosage: UNK
     Route: 065
  3. OLANZAPINE (UNKNOWN) [Suspect]
     Active Substance: OLANZAPINE
     Indication: HALLUCINATION, VISUAL
     Dosage: 5 MG, TID
     Route: 065
  4. MEMANTINE [Concomitant]
     Active Substance: MEMANTINE
     Indication: DEMENTIA
     Dosage: UNK
     Route: 065
  5. SERTRALINE [Concomitant]
     Active Substance: SERTRALINE HYDROCHLORIDE
     Indication: PSYCHIATRIC SYMPTOM
     Dosage: UNK
     Route: 065
  6. SERTRALINE [Concomitant]
     Active Substance: SERTRALINE HYDROCHLORIDE
     Indication: SLEEP DISORDER
  7. TRAZODONE [Concomitant]
     Active Substance: TRAZODONE HYDROCHLORIDE
     Indication: PSYCHIATRIC SYMPTOM
     Dosage: UNK
     Route: 065
  8. TRAZODONE [Concomitant]
     Active Substance: TRAZODONE HYDROCHLORIDE
     Indication: SLEEP DISORDER
  9. LAMOTRIGINE. [Concomitant]
     Active Substance: LAMOTRIGINE
     Indication: SEIZURE
     Dosage: 25 MG, BID
     Route: 065

REACTIONS (6)
  - Myoclonus [Recovered/Resolved]
  - Decreased appetite [Recovering/Resolving]
  - Dystonia [Recovered/Resolved]
  - Tremor [Recovering/Resolving]
  - Weight decreased [Recovering/Resolving]
  - Akathisia [Recovering/Resolving]
